FAERS Safety Report 16231767 (Version 1)
Quarter: 2019Q2

REPORT INFORMATION
  Report Type: Spontaneous
  Country: US (occurrence: US)
  Receive Date: 20190424
  Receipt Date: 20190424
  Transmission Date: 20190711
  Serious: No
  Sender: FDA-Public Use
  Company Number: US-GLAXOSMITHKLINE-US2019070800

PATIENT
  Age: 62 Year
  Sex: Female

DRUGS (3)
  1. ABREVA [Suspect]
     Active Substance: DOCOSANOL
     Indication: ORAL HERPES
     Dosage: UNK UNK, QID
     Dates: start: 20190416
  2. ABREVA [Suspect]
     Active Substance: DOCOSANOL
     Indication: ORAL HERPES
     Dosage: UNK UNK, QID
     Dates: start: 20190416
  3. ABREVA [Suspect]
     Active Substance: DOCOSANOL
     Dosage: UNK UNK, QID
     Dates: start: 20190416

REACTIONS (7)
  - Stomatitis [Unknown]
  - Oral herpes [Unknown]
  - Feeling abnormal [Unknown]
  - Oral pain [Unknown]
  - Condition aggravated [Unknown]
  - Mouth swelling [Unknown]
  - Inappropriate schedule of product administration [Unknown]

NARRATIVE: CASE EVENT DATE: 20190416
